FAERS Safety Report 8220522-5 (Version None)
Quarter: 2012Q1

REPORT INFORMATION
  Report Type: 
  Country: None (occurrence: None)
  Receive Date: 20120320
  Receipt Date: 20120313
  Transmission Date: 20120608
  Serious: Yes (Hospitalization, Other)
  Sender: FDA-Public Use
  Company Number: CA-AMGEN-CANSP2011065076

PATIENT
  Age: 51 Year
  Sex: Male
  Weight: 104.31 kg

DRUGS (4)
  1. ENBREL [Suspect]
     Indication: PSORIASIS
     Dosage: 50 MG, QWK
     Route: 058
     Dates: start: 20080101, end: 20110501
  2. ENBREL [Suspect]
     Dosage: 50 MG, QWK
     Route: 058
     Dates: start: 20060101, end: 20070101
  3. PRILOSEC [Concomitant]
     Indication: ABDOMINAL DISCOMFORT
     Dosage: 20 MG, QD
     Dates: start: 19980101
  4. TYLENOL [Concomitant]
     Dosage: 325 MG, PRN

REACTIONS (2)
  - SARCOIDOSIS [None]
  - PULMONARY SARCOIDOSIS [None]
